FAERS Safety Report 4316087-0 (Version None)
Quarter: 2004Q1

REPORT INFORMATION
  Report Type: 
  Country: None (occurrence: None)
  Receive Date: 20040310
  Receipt Date: 20040219
  Transmission Date: 20041129
  Serious: No
  Sender: FDA-Public Use
  Company Number: A01200400797

PATIENT
  Sex: Male

DRUGS (2)
  1. DANAZOL [Suspect]
     Dosage: ORAL
     Route: 048
  2. SIMVASTATIN [Suspect]

REACTIONS (3)
  - DRUG INTERACTION [None]
  - RENAL FAILURE ACUTE [None]
  - RHABDOMYOLYSIS [None]
